FAERS Safety Report 25968274 (Version 3)
Quarter: 2025Q4

REPORT INFORMATION
  Report Type: Spontaneous
  Country: US (occurrence: US)
  Receive Date: 20251028
  Receipt Date: 20251108
  Transmission Date: 20260118
  Serious: Yes (Hospitalization)
  Sender: ROCHE
  Company Number: US-ROCHE-10000418083

PATIENT
  Age: 15 Year
  Sex: Male

DRUGS (7)
  1. MYCOPHENOLATE MOFETIL [Suspect]
     Active Substance: MYCOPHENOLATE MOFETIL
     Indication: Prophylaxis against transplant rejection
     Dosage: 3 TABLETS EVERY MORNING
     Route: 048
  2. MYCOPHENOLATE MOFETIL [Suspect]
     Active Substance: MYCOPHENOLATE MOFETIL
     Dosage: 2 TABLETS EVENING
     Route: 048
  3. TACROLIMUS [Suspect]
     Active Substance: TACROLIMUS
     Indication: Prophylaxis against transplant rejection
     Route: 065
  4. PREDNISONE [Suspect]
     Active Substance: PREDNISONE
     Indication: Prophylaxis against transplant rejection
     Route: 065
  5. THYMOGLOBULIN [Suspect]
     Active Substance: LAPINE T-LYMPHOCYTE IMMUNE GLOBULIN
     Indication: Prophylaxis against transplant rejection
     Dosage: FOUR DOSES
     Route: 042
  6. NIFEDIPINE [Suspect]
     Active Substance: NIFEDIPINE
     Indication: Hypertension
     Route: 065
  7. NIFEDIPINE [Suspect]
     Active Substance: NIFEDIPINE
     Indication: Prophylaxis against transplant rejection

REACTIONS (1)
  - Gingival hypertrophy [Recovered/Resolved]

NARRATIVE: CASE EVENT DATE: 20230101
